FAERS Safety Report 4730715-7 (Version None)
Quarter: 2005Q3

REPORT INFORMATION
  Report Type: 
  Country: None (occurrence: None)
  Receive Date: 20050801
  Receipt Date: 20050720
  Transmission Date: 20060218
  Serious: Yes (Hospitalization, Other)
  Sender: FDA-Public Use
  Company Number: FR-BRISTOL-MYERS SQUIBB COMPANY-13047311

PATIENT
  Age: 46 Year
  Sex: Female

DRUGS (8)
  1. OXACILLIN [Suspect]
     Indication: INTERVERTEBRAL DISCITIS
     Route: 042
     Dates: start: 20050601, end: 20050620
  2. OXACILLIN [Suspect]
     Indication: STAPHYLOCOCCAL INFECTION
     Route: 042
     Dates: start: 20050601, end: 20050620
  3. OFLOCET [Suspect]
     Indication: INTERVERTEBRAL DISCITIS
     Route: 042
     Dates: start: 20050531, end: 20050620
  4. OFLOCET [Suspect]
     Indication: STAPHYLOCOCCAL INFECTION
     Route: 042
     Dates: start: 20050531, end: 20050620
  5. GENTAMYCIN SULFATE [Suspect]
     Indication: INTERVERTEBRAL DISCITIS
     Route: 042
     Dates: start: 20050601, end: 20050616
  6. GENTAMYCIN SULFATE [Suspect]
     Indication: STAPHYLOCOCCAL INFECTION
     Route: 042
     Dates: start: 20050601, end: 20050616
  7. LOVENOX [Suspect]
     Indication: GASTRODUODENAL ULCER
     Route: 058
     Dates: start: 20050603, end: 20050620
  8. OMEPRAZOLE [Suspect]
     Indication: GASTRODUODENAL ULCER
     Dosage: DOSAGE DECREASED TO 1 DOSAGE FORM PER DAY ON 21-JUN-2005.
     Dates: start: 20050520

REACTIONS (4)
  - AGRANULOCYTOSIS [None]
  - PYREXIA [None]
  - RENAL FAILURE [None]
  - THROMBOCYTOPENIA [None]
